FAERS Safety Report 8951671 (Version 1)
Quarter: 2012Q4

REPORT INFORMATION
  Report Type: 
  Country: US (occurrence: US)
  Receive Date: 20121204
  Receipt Date: 20121204
  Transmission Date: 20130627
  Serious: Yes (Death)
  Sender: FDA-Public Use
  Company Number: PHHY2012US110853

PATIENT
  Sex: Male

DRUGS (1)
  1. ASCRIPTIN BUFFERED MAX STRENGTH CAPLETS [Suspect]
     Indication: BACK PAIN
     Dosage: UNK UKN, UNK
     Route: 048

REACTIONS (1)
  - Death [Fatal]
